FAERS Safety Report 7466940-4 (Version None)
Quarter: 2011Q2

REPORT INFORMATION
  Report Type: 
  Country: None (occurrence: None)
  Receive Date: 20110509
  Receipt Date: 20101005
  Transmission Date: 20111010
  Serious: No
  Sender: FDA-Public Use
  Company Number: US-ALEXION-A201001262

PATIENT
  Sex: Male

DRUGS (5)
  1. RED BLOOD CELLS, CONCENTRATED [Concomitant]
     Indication: APLASTIC ANAEMIA
     Dosage: 1 UT, QW
     Dates: start: 20100701
  2. SOLIRIS [Suspect]
     Indication: PAROXYSMAL NOCTURNAL HAEMOGLOBINURIA
     Dosage: 600 MG, UNK
     Route: 042
     Dates: start: 20101001
  3. TYLENOL (CAPLET) [Concomitant]
     Indication: PREMEDICATION
     Route: 048
  4. BENADRYL [Concomitant]
     Indication: PREMEDICATION
     Route: 048
  5. PLATELETS [Concomitant]
     Indication: APLASTIC ANAEMIA
     Dosage: 1 UT, QW
     Dates: start: 20100701

REACTIONS (1)
  - FATIGUE [None]
